FAERS Safety Report 25684330 (Version 1)
Quarter: 2025Q3

REPORT INFORMATION
  Report Type: Report from Study
  Country: US (occurrence: US)
  Receive Date: 20250815
  Receipt Date: 20250815
  Transmission Date: 20251021
  Serious: Yes (Death, Other)
  Sender: ROCHE
  Company Number: US-ROCHE-10000362044

PATIENT

DRUGS (1)
  1. TOCILIZUMAB [Suspect]
     Active Substance: TOCILIZUMAB
     Indication: Prophylaxis against transplant rejection
     Route: 065

REACTIONS (11)
  - Cardiac arrest [Fatal]
  - Cytomegalovirus infection [Unknown]
  - Norovirus infection [Unknown]
  - Parainfluenzae virus infection [Unknown]
  - COVID-19 [Unknown]
  - Oesophageal candidiasis [Unknown]
  - Oesophageal candidiasis [Unknown]
  - Enterococcal infection [Unknown]
  - Oesophageal candidiasis [Unknown]
  - Bronchopulmonary aspergillosis [Unknown]
  - Bacterial infection [Unknown]
